FAERS Safety Report 24008052 (Version 1)
Quarter: 2024Q2

REPORT INFORMATION
  Report Type: Spontaneous
  Country: US (occurrence: US)
  Receive Date: 20240625
  Receipt Date: 20240625
  Transmission Date: 20240715
  Serious: Yes (Hospitalization)
  Sender: FDA-Public Use
  Company Number: US-BEH-2024173739

PATIENT
  Age: 59 Year
  Sex: Male

DRUGS (3)
  1. BERINERT [Suspect]
     Active Substance: HUMAN C1-ESTERASE INHIBITOR
     Indication: Hereditary angioedema
     Dosage: 1000 IU, PRN
     Route: 042
     Dates: start: 202403
  2. BERINERT [Suspect]
     Active Substance: HUMAN C1-ESTERASE INHIBITOR
     Indication: Hereditary angioedema
     Dosage: 1000 IU, PRN
     Route: 042
     Dates: start: 202403
  3. TAKHZYRO [Concomitant]
     Active Substance: LANADELUMAB-FLYO

REACTIONS (2)
  - Hip arthroplasty [Unknown]
  - Electroencephalogram abnormal [Unknown]

NARRATIVE: CASE EVENT DATE: 20240522
